FAERS Safety Report 16119005 (Version 1)
Quarter: 2019Q1

REPORT INFORMATION
  Report Type: Spontaneous
  Country: CL (occurrence: CL)
  Receive Date: 20190326
  Receipt Date: 20190326
  Transmission Date: 20190418
  Serious: Yes (Death, Other)
  Sender: FDA-Public Use
  Company Number: CL-ASTRAZENECA-2019SE46751

PATIENT
  Age: 19575 Day
  Sex: Female

DRUGS (1)
  1. IRESSA [Suspect]
     Active Substance: GEFITINIB
     Indication: NEOPLASM MALIGNANT
     Dosage: 250.0MG UNKNOWN
     Route: 048
     Dates: start: 20181201

REACTIONS (2)
  - Hepatic neoplasm [Unknown]
  - Hepatic failure [Fatal]

NARRATIVE: CASE EVENT DATE: 20190314
